FAERS Safety Report 9177945 (Version 2)
Quarter: 2012Q4

REPORT INFORMATION
  Report Type: 
  Country: US (occurrence: US)
  Receive Date: 20121016
  Receipt Date: 20121029
  Transmission Date: 20130627
  Serious: Yes (Hospitalization, Other)
  Sender: FDA-Public Use
  Company Number: US-AMGEN-USASP2012065287

PATIENT
  Age: 46 Year
  Sex: Female

DRUGS (1)
  1. ENBREL [Suspect]
     Indication: POLYCHONDRITIS
     Dosage: 50 mg, 2 times/wk
     Dates: start: 20081207, end: 20120912

REACTIONS (23)
  - Gastrointestinal haemorrhage [Unknown]
  - Constipation [Unknown]
  - Eye inflammation [Unknown]
  - Nasal inflammation [Unknown]
  - External ear inflammation [Unknown]
  - Pyrexia [Unknown]
  - Asthenia [Unknown]
  - Vision blurred [Not Recovered/Not Resolved]
  - Dyspnoea [Unknown]
  - Facial pain [Unknown]
  - Abdominal pain upper [Unknown]
  - Hypertension [Unknown]
  - Cough [Unknown]
  - Haemoglobin decreased [Unknown]
  - Staphylococcal infection [Unknown]
  - Pharyngitis [Unknown]
  - Impaired gastric emptying [Unknown]
  - Abdominal pain [Unknown]
  - Faecal incontinence [Unknown]
  - Butterfly rash [Not Recovered/Not Resolved]
  - Arthralgia [Not Recovered/Not Resolved]
  - Raynaud^s phenomenon [Not Recovered/Not Resolved]
  - Tracheobronchial stent insertion [Recovered/Resolved]
